FAERS Safety Report 8920521 (Version 1)
Quarter: 2012Q4

REPORT INFORMATION
  Report Type: 
  Country: ES (occurrence: ES)
  Receive Date: 20121122
  Receipt Date: 20121122
  Transmission Date: 20130627
  Serious: Yes (Other)
  Sender: FDA-Public Use
  Company Number: ES-SANOFI-AVENTIS-2012SA084414

PATIENT
  Age: 82 Year
  Sex: Female

DRUGS (6)
  1. CLEXANE [Suspect]
     Indication: THROMBOSIS PROPHYLAXIS
     Route: 058
     Dates: start: 20120503, end: 20120511
  2. METOTREXATE [Suspect]
     Indication: RHEUMATOID ARTHRITIS
     Route: 048
     Dates: start: 201101, end: 20120505
  3. PARACETAMOL [Suspect]
     Indication: PAIN
     Route: 042
     Dates: start: 20120504, end: 20120508
  4. SPIRONOLACTONE [Concomitant]
     Indication: CARDIAC FAILURE
     Route: 048
     Dates: start: 20120501, end: 20120503
  5. DACORTIN [Concomitant]
     Indication: RHEUMATOID ARTHRITIS
     Route: 048
     Dates: start: 2008
  6. LEVOTHYROXINE SODIUM [Concomitant]
     Indication: HYPOTHYROIDISM
     Route: 048
     Dates: start: 2008

REACTIONS (1)
  - Hepatitis [Recovered/Resolved]
